FAERS Safety Report 6664245-2 (Version None)
Quarter: 2010Q2

REPORT INFORMATION
  Report Type: 
  Country: None (occurrence: None)
  Receive Date: 20100401
  Receipt Date: 20100322
  Transmission Date: 20101027
  Serious: Yes (Other)
  Sender: FDA-Public Use
  Company Number: PHHY2010US18132

PATIENT
  Sex: Male

DRUGS (7)
  1. DIOVAN HCT [Suspect]
     Dosage: 320/12.5 MG, UNK
  2. AMLODIPINE BESYLATE AND BENAZEPRIL HCL [Suspect]
     Dosage: UNK
  3. ASPIRIN [Suspect]
     Dosage: UNK
  4. NAPROXEN [Suspect]
  5. CODEINE SULFATE [Suspect]
  6. VITAMIN C [Concomitant]
  7. VITAMIN E [Concomitant]

REACTIONS (1)
  - CEREBROVASCULAR ACCIDENT [None]
